FAERS Safety Report 16669900 (Version 3)
Quarter: 2019Q3

REPORT INFORMATION
  Report Type: Spontaneous
  Country: US (occurrence: US)
  Receive Date: 20190805
  Receipt Date: 20190826
  Transmission Date: 20191004
  Serious: No
  Sender: FDA-Public Use
  Company Number: US-PFIZER INC-2019334388

PATIENT
  Age: 69 Year
  Sex: Female
  Weight: 70.3 kg

DRUGS (1)
  1. XANAX [Suspect]
     Active Substance: ALPRAZOLAM
     Indication: ANXIETY
     Dosage: 0.125 MG, UNK
     Route: 048
     Dates: start: 201905

REACTIONS (1)
  - Therapeutic product effect incomplete [Unknown]
